FAERS Safety Report 7454987-3 (Version None)
Quarter: 2011Q2

REPORT INFORMATION
  Report Type: 
  Country: None (occurrence: None)
  Receive Date: 20110503
  Receipt Date: 20110425
  Transmission Date: 20111010
  Serious: Yes (Other)
  Sender: FDA-Public Use
  Company Number: JP-NOVOPROD-327242

PATIENT
  Age: 13 Year
  Sex: Female
  Weight: 28 kg

DRUGS (2)
  1. NORDITROPIN NORDIFLEX CHU [Suspect]
     Indication: GROWTH HORMONE DEFICIENCY
     Dosage: 5.6 MG, QD
     Route: 058
     Dates: start: 20100208, end: 20100802
  2. SELENICA R [Concomitant]
     Dosage: 700 MG, QD
     Route: 048
     Dates: start: 20030307

REACTIONS (1)
  - SCOLIOSIS [None]
